FAERS Safety Report 5928912-8 (Version None)
Quarter: 2008Q4

REPORT INFORMATION
  Report Type: 
  Country: None (occurrence: None)
  Receive Date: 20081024
  Receipt Date: 20081023
  Transmission Date: 20090506
  Serious: Yes (Death, Hospitalization)
  Sender: FDA-Public Use
  Company Number: PHHO2000ES03629

PATIENT
  Sex: Female

DRUGS (3)
  1. NEORAL [Suspect]
     Indication: LIVER TRANSPLANT
     Dates: start: 20000709, end: 20000713
  2. SIMULECT [Suspect]
     Indication: LIVER TRANSPLANT
     Dosage: 20 MG, QD
     Route: 048
     Dates: start: 20000709, end: 20000709
  3. SIMULECT [Suspect]
     Dosage: 20 MG, QD
     Route: 048
     Dates: start: 20000712, end: 20000712

REACTIONS (5)
  - MULTI-ORGAN FAILURE [None]
  - PSEUDOMONAS INFECTION [None]
  - RESPIRATORY FAILURE [None]
  - RESPIRATORY TRACT INFECTION [None]
  - SEPSIS [None]
